FAERS Safety Report 22308848 (Version 1)
Quarter: 2023Q2

REPORT INFORMATION
  Report Type: Spontaneous
  Country: US (occurrence: US)
  Receive Date: 20230511
  Receipt Date: 20230511
  Transmission Date: 20230721
  Serious: Yes (Other)
  Sender: FDA-Public Use
  Company Number: US-PFIZER INC-PV202300080662

PATIENT
  Age: 69 Year
  Sex: Male

DRUGS (5)
  1. GEMCITABINE HYDROCHLORIDE [Suspect]
     Active Substance: GEMCITABINE HYDROCHLORIDE
     Indication: Rhabdomyosarcoma
     Dosage: UNK, CYCLIC (3 CYCLES)
  2. ADRIAMYCIN [Concomitant]
     Active Substance: DOXORUBICIN HYDROCHLORIDE
     Indication: Rhabdomyosarcoma
     Dosage: UNK
  3. ADRIAMYCIN [Concomitant]
     Active Substance: DOXORUBICIN HYDROCHLORIDE
     Indication: Metastasis
  4. MESNA [Concomitant]
     Active Substance: MESNA
     Indication: Rhabdomyosarcoma
     Dosage: UNK
  5. MESNA [Concomitant]
     Active Substance: MESNA
     Indication: Metastasis

REACTIONS (1)
  - Tubulointerstitial nephritis [Recovering/Resolving]
